FAERS Safety Report 20565691 (Version 1)
Quarter: 2022Q1

REPORT INFORMATION
  Report Type: Spontaneous
  Country: NO (occurrence: NO)
  Receive Date: 20220308
  Receipt Date: 20220308
  Transmission Date: 20220423
  Serious: Yes (Life-Threatening, Other)
  Sender: FDA-Public Use
  Company Number: None

PATIENT
  Age: 48 Year
  Sex: Female

DRUGS (3)
  1. ALBUTEROL [Suspect]
     Active Substance: ALBUTEROL
     Indication: Asthma
     Dosage: UNK UNK, QD (UP TO 4 INHALATIONS DAILY)
     Route: 055
     Dates: start: 1989, end: 20220215
  2. ALBUTEROL [Suspect]
     Active Substance: ALBUTEROL
     Indication: Asthma
     Dosage: UNK UNK, QD (UP TO 4 INHALATIONS DAILY)
     Route: 055
     Dates: start: 2020, end: 20220215
  3. ATROVENT [Suspect]
     Active Substance: IPRATROPIUM BROMIDE
     Indication: Asthma
     Dosage: UNK UNK, QD (UP TO 4 INHALATIONS DAILY)
     Route: 055
     Dates: start: 2020, end: 20220215

REACTIONS (8)
  - Upper respiratory fungal infection [Recovering/Resolving]
  - Pneumonia fungal [Recovering/Resolving]
  - Respiratory distress [Recovering/Resolving]
  - Oral fungal infection [Recovering/Resolving]
  - Candida infection [Unknown]
  - Abdominal pain upper [Unknown]
  - Abdominal distension [Unknown]
  - Splenomegaly [Unknown]

NARRATIVE: CASE EVENT DATE: 20210101
